FAERS Safety Report 10671774 (Version 4)
Quarter: 2015Q1

REPORT INFORMATION
  Report Type: Spontaneous
  Country: GB (occurrence: GB)
  Receive Date: 20141223
  Receipt Date: 20150201
  Transmission Date: 20150720
  Serious: Yes (Disabling)
  Sender: FDA-Public Use
  Company Number: GB-MYLANLABS-2014M1012143

PATIENT

DRUGS (2)
  1. LEVOFLOXACIN 250MG [Suspect]
     Active Substance: LEVOFLOXACIN
     Indication: LOWER RESPIRATORY TRACT INFECTION
     Dosage: 250 MG, QD
     Route: 048
     Dates: start: 20141022, end: 20141027
  2. LISINOPRIL. [Concomitant]
     Active Substance: LISINOPRIL
     Indication: CARDIAC FAILURE
     Dosage: 1 DF, QD
     Route: 048

REACTIONS (5)
  - Pain in extremity [Not Recovered/Not Resolved]
  - Tendon pain [Not Recovered/Not Resolved]
  - Pain [Not Recovered/Not Resolved]
  - Activities of daily living impaired [Unknown]
  - Depression [Unknown]

NARRATIVE: CASE EVENT DATE: 20141022
